FAERS Safety Report 7622599-4 (Version None)
Quarter: 2011Q3

REPORT INFORMATION
  Report Type: 
  Country: None (occurrence: None)
  Receive Date: 20110719
  Receipt Date: 20110719
  Transmission Date: 20111222
  Serious: Yes (Hospitalization)
  Sender: FDA-Public Use
  Company Number: None

PATIENT
  Age: 85 Year
  Sex: Male

DRUGS (2)
  1. IOHEXOL [Suspect]
     Indication: ANGIOGRAM
     Dosage: 242 ML ONCE IV BOLUS 1 DOSE
     Route: 040
     Dates: start: 20110404, end: 20110404
  2. IOHEXOL [Suspect]
     Indication: CATHETERISATION CARDIAC
     Dosage: 242 ML ONCE IV BOLUS 1 DOSE
     Route: 040
     Dates: start: 20110404, end: 20110404

REACTIONS (4)
  - CONTRAST MEDIA REACTION [None]
  - NEPHROPATHY [None]
  - HAEMODIALYSIS [None]
  - RENAL FAILURE ACUTE [None]
